FAERS Safety Report 7567916-9 (Version None)
Quarter: 2011Q2

REPORT INFORMATION
  Report Type: 
  Country: None (occurrence: None)
  Receive Date: 20110623
  Receipt Date: 20110610
  Transmission Date: 20111010
  Serious: Yes (Other)
  Sender: FDA-Public Use
  Company Number: RU-AMGEN-RUSSP2011019184

PATIENT
  Sex: Female

DRUGS (4)
  1. CINACALCET HYDROCHLORIDE [Suspect]
     Dosage: 30 MG, UNK
  2. CINACALCET HYDROCHLORIDE [Suspect]
     Indication: HYPERPARATHYROIDISM SECONDARY
     Dosage: 60 MG, QD
     Dates: start: 20110207, end: 20110402
  3. CINACALCET HYDROCHLORIDE [Suspect]
     Dosage: 60 UNK, UNK
  4. ALFACALCIDOL [Concomitant]
     Indication: HYPERPARATHYROIDISM SECONDARY
     Dosage: 1 A?G, 3 TIMES/WK
     Dates: start: 20110207

REACTIONS (7)
  - BLOOD CALCIUM DECREASED [None]
  - MYOCLONUS [None]
  - ARTHRALGIA [None]
  - CONVULSION [None]
  - HYPOTENSION [None]
  - VOMITING [None]
  - NAUSEA [None]
